FAERS Safety Report 8438156-6 (Version None)
Quarter: 2012Q2

REPORT INFORMATION
  Report Type: 
  Country: None (occurrence: None)
  Receive Date: 20120614
  Receipt Date: 20120607
  Transmission Date: 20120825
  Serious: Yes (Hospitalization, Other)
  Sender: FDA-Public Use
  Company Number: JP-ROCHE-726941

PATIENT
  Sex: Female
  Weight: 34 kg

DRUGS (23)
  1. ACTEMRA [Suspect]
     Route: 041
     Dates: start: 20091224, end: 20091224
  2. OMEPRAZOLE [Suspect]
     Indication: PROPHYLAXIS
     Route: 048
  3. VOLTAREN [Suspect]
     Route: 003
  4. VOLTAREN-XR [Suspect]
     Dosage: DOSE FORM: SUSTAINED RELEASE CAPSULE
     Route: 048
  5. LIPITOR [Concomitant]
     Indication: LIPIDS ABNORMAL
     Route: 048
  6. COTRIM [Concomitant]
     Indication: PROPHYLAXIS
     Route: 048
  7. ALLOPURINOL [Concomitant]
     Indication: HYPERURICAEMIA
     Route: 048
  8. PREDNISOLONE [Suspect]
     Indication: RHEUMATOID ARTHRITIS
     Dosage: DOSE FORM: PERORAL AGENT
     Route: 048
  9. VOLTAREN [Suspect]
     Indication: PRODUCT USED FOR UNKNOWN INDICATION
     Dosage: VOLTAREN:LOTION(DICLOFENAC SODIUM)
     Route: 003
     Dates: start: 20081204, end: 20100907
  10. BASEN [Concomitant]
     Indication: DIABETES MELLITUS
     Route: 048
  11. POLARAMINE [Concomitant]
     Route: 048
  12. VOLTAREN-XR [Suspect]
     Indication: RHEUMATOID ARTHRITIS
     Dosage: DOSE FORM: SUSTAINED RELEASE CAPSULE
     Route: 048
     Dates: start: 20090706, end: 20100907
  13. ACTEMRA [Suspect]
     Route: 041
     Dates: start: 20090930, end: 20090930
  14. ACTEMRA [Suspect]
     Route: 041
     Dates: start: 20100216, end: 20100928
  15. OLMESARTAN MEDOXOMIL [Concomitant]
     Indication: HYPERTENSION
     Route: 048
     Dates: start: 20080226, end: 20110415
  16. ACTONEL [Concomitant]
     Indication: OSTEOPOROSIS
     Route: 048
  17. VITAMIN B12 [Concomitant]
     Route: 048
  18. CYTOTEC [Concomitant]
     Indication: PROPHYLAXIS
     Route: 048
  19. ACTEMRA [Suspect]
     Indication: RHEUMATOID ARTHRITIS
     Route: 041
     Dates: start: 20090826, end: 20090826
  20. ACTEMRA [Suspect]
     Route: 041
     Dates: start: 20091028, end: 20091028
  21. ACTEMRA [Suspect]
     Route: 041
     Dates: start: 20091125, end: 20091125
  22. ACTEMRA [Suspect]
     Route: 041
     Dates: start: 20100120, end: 20100120
  23. RHEUMATREX [Suspect]
     Indication: RHEUMATOID ARTHRITIS
     Route: 048

REACTIONS (3)
  - LARGE INTESTINE PERFORATION [None]
  - INFECTIOUS PERITONITIS [None]
  - LARGE INTESTINAL ULCER [None]
